FAERS Safety Report 10027462 (Version 1)
Quarter: 2014Q1

REPORT INFORMATION
  Report Type: Spontaneous
  Country: GB (occurrence: None)
  Receive Date: 20140319
  Receipt Date: 20140319
  Transmission Date: 20141002
  Serious: Yes (Other)
  Sender: FDA-Public Use
  Company Number: GB-DEXPHARM-20140116

PATIENT
  Age: 83 Year
  Sex: Male

DRUGS (9)
  1. OMEPRAZOLE [Suspect]
     Indication: HIATUS HERNIA
     Dosage: 30 MG MILLIGRAM(S) SEP. DOSAGES/INTERVAL: 1 IN 1 DAYS
     Route: 048
     Dates: start: 20131128, end: 20140124
  2. ADIZEM-XL [Concomitant]
  3. AMOXICILLIN [Concomitant]
  4. BENDROFLUMETHIAZIDE [Concomitant]
  5. CLARITHROMYCIN [Concomitant]
  6. FINASTERIDE [Concomitant]
  7. ISOSORBIDE [Concomitant]
  8. PERINDOPRIL ERBUMINE [Concomitant]
  9. PROPRANOLOL HYDROCHLORIDE [Concomitant]

REACTIONS (4)
  - Weight decreased [None]
  - Transaminases increased [None]
  - Aspartate aminotransferase increased [None]
  - Alanine aminotransferase increased [None]
